FAERS Safety Report 17266571 (Version 1)
Quarter: 2019Q4

REPORT INFORMATION
  Report Type: Spontaneous
  Country: US (occurrence: US)
  Receive Date: 20191219
  Receipt Date: 20191219
  Transmission Date: 20200122
  Serious: Yes (Death)
  Sender: FDA-Public Use
  Company Number: None

PATIENT
  Age: 88 Year
  Sex: Female
  Weight: 54.43 kg

DRUGS (4)
  1. DONEPEZIL. [Suspect]
     Active Substance: DONEPEZIL
     Indication: DEMENTIA
  2. VITAMIN D3 [Concomitant]
     Active Substance: CHOLECALCIFEROL
  3. WARFARIN [Suspect]
     Active Substance: WARFARIN
     Indication: ATRIAL FIBRILLATION
     Route: 048
     Dates: start: 20181107
  4. PACEMAKER [Suspect]
     Active Substance: DEVICE

REACTIONS (2)
  - Unresponsive to stimuli [None]
  - Cerebral haemorrhage [None]

NARRATIVE: CASE EVENT DATE: 20190325
